FAERS Safety Report 16890569 (Version 2)
Quarter: 2019Q4

REPORT INFORMATION
  Report Type: Spontaneous
  Country: US (occurrence: US)
  Receive Date: 20191007
  Receipt Date: 20191010
  Transmission Date: 20200122
  Serious: No
  Sender: FDA-Public Use
  Company Number: US-PFIZER INC-2019427204

PATIENT
  Age: 30 Year
  Sex: Female
  Weight: 106.1 kg

DRUGS (2)
  1. LYRICA [Suspect]
     Active Substance: PREGABALIN
     Indication: MULTIPLE SCLEROSIS
     Dosage: 100 MG, 3X/DAY
  2. LYRICA [Suspect]
     Active Substance: PREGABALIN
     Indication: BURNING SENSATION
     Dosage: 235 MG, 1X/DAY (235 MG ONCE AT NIGHT)
     Dates: start: 2015

REACTIONS (5)
  - Movement disorder [Unknown]
  - Product use in unapproved indication [Unknown]
  - Memory impairment [Unknown]
  - Off label use [Unknown]
  - Crying [Unknown]

NARRATIVE: CASE EVENT DATE: 2015
